FAERS Safety Report 4358310-2 (Version None)
Quarter: 2004Q2

REPORT INFORMATION
  Report Type: 
  Country: None (occurrence: None)
  Receive Date: 20040514
  Receipt Date: 20040430
  Transmission Date: 20050107
  Serious: Yes (Disabling, Other)
  Sender: FDA-Public Use
  Company Number: US-MERCK-0405USA00020

PATIENT
  Age: 46 Year
  Sex: Female
  Weight: 96 kg

DRUGS (7)
  1. FOSAMAX [Suspect]
     Indication: OSTEOPOROSIS
     Route: 048
     Dates: start: 20020301, end: 20040301
  2. LIPITOR [Concomitant]
     Route: 048
  3. CHOLESTYRAMINE RESIN [Concomitant]
     Indication: DIARRHOEA
     Route: 065
  4. ZYPREXA [Concomitant]
     Route: 065
  5. OXYTROL [Concomitant]
     Route: 061
  6. SALSALATE [Concomitant]
     Route: 065
  7. EFFEXOR XR [Concomitant]
     Route: 065

REACTIONS (17)
  - ANXIETY [None]
  - APPLICATION SITE DERMATITIS [None]
  - ARTHRALGIA [None]
  - BACK PAIN [None]
  - COLONIC POLYP [None]
  - DENTAL EXAMINATION ABNORMAL [None]
  - DIARRHOEA [None]
  - DUODENAL ULCER [None]
  - GALLBLADDER DISORDER [None]
  - GASTRITIS EROSIVE [None]
  - HEPATIC STEATOSIS [None]
  - JOINT EFFUSION [None]
  - MIGRAINE [None]
  - OESOPHAGITIS [None]
  - PEPTIC ULCER [None]
  - RASH [None]
  - RHINITIS ALLERGIC [None]
